FAERS Safety Report 7757134-3 (Version None)
Quarter: 2011Q3

REPORT INFORMATION
  Report Type: 
  Country: None (occurrence: None)
  Receive Date: 20110916
  Receipt Date: 20110915
  Transmission Date: 20111222
  Serious: No
  Sender: FDA-Public Use
  Company Number: US-TEVA-300349USA

PATIENT
  Sex: Female
  Weight: 68.1 kg

DRUGS (2)
  1. PLAN B ONE-STEP [Suspect]
     Indication: POST COITAL CONTRACEPTION
     Dosage: 1.5 MILLIGRAM;
     Route: 048
     Dates: start: 20110904, end: 20110904
  2. PRENATAL VITAMINS [Concomitant]
     Indication: VITAMIN SUPPLEMENTATION

REACTIONS (2)
  - SUPPRESSED LACTATION [None]
  - EXPOSURE DURING BREAST FEEDING [None]
